FAERS Safety Report 9176923 (Version 1)
Quarter: 2013Q1

REPORT INFORMATION
  Report Type: Spontaneous
  Country: DE (occurrence: DE)
  Receive Date: 20130321
  Receipt Date: 20130321
  Transmission Date: 20140127
  Serious: Yes (Death)
  Sender: FDA-Public Use
  Company Number: DE-JNJFOC-20130308621

PATIENT
  Sex: Female

DRUGS (4)
  1. DOXORUBICIN [Suspect]
     Indication: OVARIAN CANCER
     Route: 042
  2. DOXORUBICIN [Suspect]
     Indication: OVARIAN CANCER
     Route: 042
  3. UNKNOWN MEDICATION [Suspect]
     Indication: PROPHYLAXIS
     Dosage: AT LEAST TWICE DAILY, 2 DAYS BEFORE AND DURING 3 CYCLES OF CHEMOTHERAPY
     Route: 061
  4. UNKNOWN MEDICATION [Suspect]
     Indication: PROPHYLAXIS
     Dosage: AT LEAST TWICE DAILY, 2 DAYS BEFORE AND DURING 3 CYCLES OF CHEMOTHERAPY
     Route: 061

REACTIONS (1)
  - Death [Fatal]
